FAERS Safety Report 18912247 (Version 1)
Quarter: 2021Q1

REPORT INFORMATION
  Report Type: Spontaneous
  Country: US (occurrence: US)
  Receive Date: 20210219
  Receipt Date: 20210219
  Transmission Date: 20210420
  Serious: No
  Sender: FDA-Public Use
  Company Number: US-SA-2021SA056335

PATIENT
  Sex: Female

DRUGS (1)
  1. AUBAGIO [Suspect]
     Active Substance: TERIFLUNOMIDE
     Indication: MULTIPLE SCLEROSIS
     Dosage: 14 MG, QD
     Route: 048
     Dates: start: 20200723

REACTIONS (6)
  - Muscle spasms [Unknown]
  - Memory impairment [Unknown]
  - Feeling abnormal [Unknown]
  - Fatigue [Unknown]
  - Condition aggravated [Unknown]
  - Hypoaesthesia [Unknown]
